FAERS Safety Report 14000738 (Version 2)
Quarter: 2017Q3

REPORT INFORMATION
  Report Type: Report from Study
  Country: US (occurrence: US)
  Receive Date: 20170922
  Receipt Date: 20170929
  Transmission Date: 20171128
  Serious: Yes (Hospitalization)
  Sender: FDA-Public Use
  Company Number: US-EXELIXIS-CABO-17010573

PATIENT
  Age: 67 Year
  Sex: Female

DRUGS (12)
  1. ZOFRAN [Concomitant]
     Active Substance: ONDANSETRON HYDROCHLORIDE
  2. MATZIM LA [Concomitant]
     Active Substance: DILTIAZEM HYDROCHLORIDE
  3. PROPAFENONE HCL [Concomitant]
     Active Substance: PROPAFENONE HYDROCHLORIDE
  4. FOSRENOL [Concomitant]
     Active Substance: LANTHANUM CARBONATE
  5. ELIQUIS [Concomitant]
     Active Substance: APIXABAN
  6. SYNTHROID [Concomitant]
     Active Substance: LEVOTHYROXINE SODIUM
  7. SODIUM BICARBONATE. [Concomitant]
     Active Substance: SODIUM BICARBONATE
  8. AMLODIPINE [Concomitant]
     Active Substance: AMLODIPINE BESYLATE
  9. CABOMETYX [Suspect]
     Active Substance: CABOZANTINIB S-MALATE
     Indication: RENAL CANCER
     Dosage: 60 MG, QD
     Route: 048
     Dates: start: 20160524, end: 201609
  10. COREG [Concomitant]
     Active Substance: CARVEDILOL
  11. ZOMETA [Concomitant]
     Active Substance: ZOLEDRONIC ACID
  12. CABOMETYX [Suspect]
     Active Substance: CABOZANTINIB S-MALATE
     Indication: RECTAL CANCER
     Dosage: 40 MG, QD
     Route: 048
     Dates: start: 201705, end: 20170830

REACTIONS (2)
  - Pleural effusion [Unknown]
  - Catheter site pain [Unknown]

NARRATIVE: CASE EVENT DATE: 201709
